FAERS Safety Report 15883747 (Version 1)
Quarter: 2019Q1

REPORT INFORMATION
  Report Type: Spontaneous
  Country: US (occurrence: US)
  Receive Date: 20190107
  Receipt Date: 20190107
  Transmission Date: 20190417
  Serious: Yes (Hospitalization)
  Sender: FDA-Public Use
  Company Number: None

PATIENT
  Age: 49 Year
  Sex: Female

DRUGS (13)
  1. DEXTROAMPHET SACCHARAT, AMPHET ASPARTATE, DEXTROAMPHET SULFATE AND AMPHET SULFAT [Concomitant]
     Active Substance: AMPHETAMINE ASPARTATE\AMPHETAMINE SULFATE\DEXTROAMPHETAMINE SACCHARATE\DEXTROAMPHETAMINE SULFATE
  2. CODY/APAP [Concomitant]
  3. LEVOTHYROXINE. [Concomitant]
     Active Substance: LEVOTHYROXINE
  4. VANCOMYC/DEX [Concomitant]
  5. LINZESS [Concomitant]
     Active Substance: LINACLOTIDE
  6. TOPIRAMATE. [Concomitant]
     Active Substance: TOPIRAMATE
  7. XELJANZ XR [Suspect]
     Active Substance: TOFACITINIB CITRATE
     Indication: RHEUMATOID ARTHRITIS
     Route: 048
     Dates: start: 20161026
  8. DESVENLAFAX [Concomitant]
  9. FENTANYL. [Concomitant]
     Active Substance: FENTANYL
  10. CIPROFLOXACN [Concomitant]
     Active Substance: CIPROFLOXACIN
  11. MEDROXYPR AC [Concomitant]
  12. TECFIDERA [Concomitant]
     Active Substance: DIMETHYL FUMARATE
  13. CLINDAMYCIN. [Concomitant]
     Active Substance: CLINDAMYCIN

REACTIONS (2)
  - Abdominal pain [None]
  - Fear [None]

NARRATIVE: CASE EVENT DATE: 20190101
